FAERS Safety Report 17710169 (Version 1)
Quarter: 2020Q2

REPORT INFORMATION
  Report Type: Spontaneous
  Country: US (occurrence: US)
  Receive Date: 20200427
  Receipt Date: 20200427
  Transmission Date: 20200714
  Serious: No
  Sender: FDA-Public Use
  Company Number: US-SA-2020SA106981

PATIENT
  Age: 35 Year
  Sex: Female

DRUGS (2)
  1. DIPHENHYDRAMINE. [Suspect]
     Active Substance: DIPHENHYDRAMINE
     Indication: HYPERSENSITIVITY
     Route: 065
  2. CABLIVI [Suspect]
     Active Substance: CAPLACIZUMAB-YHDP
     Indication: THROMBOTIC MICROANGIOPATHY
     Dosage: 11 MG, QD
     Route: 058
     Dates: start: 202004, end: 20200420

REACTIONS (4)
  - Urticaria [Unknown]
  - Hypersensitivity [Unknown]
  - Lip swelling [Unknown]
  - Rash [Unknown]

NARRATIVE: CASE EVENT DATE: 202004
